FAERS Safety Report 6122156-5 (Version None)
Quarter: 2009Q1

REPORT INFORMATION
  Report Type: 
  Country: None (occurrence: None)
  Receive Date: 20090318
  Receipt Date: 20090309
  Transmission Date: 20090719
  Serious: Yes (Hospitalization, Other)
  Sender: FDA-Public Use
  Company Number: PHHY2009IT08614

PATIENT
  Age: 46 Year
  Sex: Male

DRUGS (8)
  1. CYCLOSPORINE [Suspect]
     Indication: STEM CELL TRANSPLANT
  2. CYCLOSPORINE [Suspect]
     Indication: PROPHYLAXIS AGAINST GRAFT VERSUS HOST DISEASE
  3. METHOTREXATE [Concomitant]
     Indication: PROPHYLAXIS AGAINST GRAFT VERSUS HOST DISEASE
  4. METHOTREXATE [Concomitant]
     Indication: STEM CELL TRANSPLANT
  5. THIOTEPA [Concomitant]
     Indication: STEM CELL TRANSPLANT
  6. CYCLOPHOSPHAMIDE [Concomitant]
     Indication: STEM CELL TRANSPLANT
  7. ATG                                     /BEL/ [Concomitant]
     Indication: STEM CELL TRANSPLANT
  8. FLUCONAZOLE [Concomitant]
     Indication: PROPHYLAXIS
     Dosage: 400 MG/DAY
     Route: 042

REACTIONS (11)
  - DEBRIDEMENT [None]
  - HYPOKALAEMIA [None]
  - MAXILLOFACIAL OPERATION [None]
  - MUCOSAL NECROSIS [None]
  - MUSCLE NECROSIS [None]
  - ORAL MUCOSAL EXFOLIATION [None]
  - OSTEONECROSIS [None]
  - PAIN [None]
  - PYREXIA [None]
  - TOOTH DISORDER [None]
  - ZYGOMYCOSIS [None]
